FAERS Safety Report 16573895 (Version 1)
Quarter: 2019Q3

REPORT INFORMATION
  Report Type: Spontaneous
  Country: EG (occurrence: EG)
  Receive Date: 20190715
  Receipt Date: 20190715
  Transmission Date: 20191004
  Serious: Yes (Other)
  Sender: FDA-Public Use
  Company Number: EG-009507513-1907EGY004787

PATIENT
  Age: 39 Year
  Sex: Male

DRUGS (1)
  1. ZEPATIER [Suspect]
     Active Substance: ELBASVIR\GRAZOPREVIR
     Indication: HEPATITIS C
     Dosage: UNK
     Route: 048
     Dates: start: 201904

REACTIONS (3)
  - Hepatitis C [Unknown]
  - Therapeutic response decreased [Unknown]
  - Hepatitis C RNA increased [Unknown]

NARRATIVE: CASE EVENT DATE: 20190628
